FAERS Safety Report 7481239-8 (Version None)
Quarter: 2011Q2

REPORT INFORMATION
  Report Type: 
  Country: None (occurrence: None)
  Receive Date: 20110516
  Receipt Date: 20110503
  Transmission Date: 20111010
  Serious: Yes (Other)
  Sender: FDA-Public Use
  Company Number: PHHY2011FR38471

PATIENT

DRUGS (1)
  1. ZOLEDRONIC ACID [Suspect]
     Dosage: 5 MG, UNK
     Route: 042

REACTIONS (1)
  - CELLULITIS [None]
